FAERS Safety Report 16719794 (Version 1)
Quarter: 2019Q3

REPORT INFORMATION
  Report Type: Spontaneous
  Country: US (occurrence: US)
  Receive Date: 20190820
  Receipt Date: 20190820
  Transmission Date: 20191005
  Serious: Yes (Other)
  Sender: FDA-Public Use
  Company Number: US-MERZ NORTH AMERICA, INC.-19MRZ-00326

PATIENT
  Sex: Female

DRUGS (1)
  1. XEOMIN [Suspect]
     Active Substance: INCOBOTULINUMTOXINA
     Indication: SKIN COSMETIC PROCEDURE
     Dosage: UNKNOWN
     Dates: start: 20190515, end: 20190515

REACTIONS (6)
  - Syncope [Unknown]
  - Seizure [Unknown]
  - Eye disorder [Unknown]
  - Cerebrovascular accident [Unknown]
  - Migraine [Unknown]
  - Impaired work ability [Unknown]
